FAERS Safety Report 7500103-9 (Version None)
Quarter: 2011Q2

REPORT INFORMATION
  Report Type: 
  Country: None (occurrence: None)
  Receive Date: 20110524
  Receipt Date: 20110513
  Transmission Date: 20111010
  Serious: Yes (Death)
  Sender: FDA-Public Use
  Company Number: US-BAXTER-2011BH001207

PATIENT
  Age: 58 Year
  Sex: Female
  Weight: 45 kg

DRUGS (35)
  1. HYDROXYZINE [Concomitant]
     Indication: ANXIETY
     Route: 048
     Dates: start: 20040823, end: 20110104
  2. REGLAN [Concomitant]
     Indication: GASTROOESOPHAGEAL REFLUX DISEASE
     Route: 048
     Dates: start: 20050620, end: 20110104
  3. SEROQUEL [Concomitant]
     Indication: INSOMNIA
     Route: 048
     Dates: start: 20100601, end: 20110104
  4. VYVANSE [Concomitant]
     Indication: ATTENTION DEFICIT/HYPERACTIVITY DISORDER
     Route: 048
     Dates: start: 20100419, end: 20110104
  5. VITAMIN D [Concomitant]
     Indication: ROUTINE HEALTH MAINTENANCE
     Route: 048
     Dates: start: 20091207, end: 20110104
  6. TIOTROPIUM BROMIDE [Concomitant]
     Indication: ASTHMA
     Route: 055
     Dates: start: 20060713, end: 20110104
  7. FLUTICASONE PROPIONATE [Concomitant]
     Indication: RHINITIS ALLERGIC
     Route: 055
     Dates: start: 20071210, end: 20110104
  8. ALLEGRA-D                          /01367401/ [Concomitant]
     Indication: RHINITIS ALLERGIC
     Route: 048
     Dates: start: 20080609, end: 20110104
  9. PHENERGAN HCL [Concomitant]
     Indication: NAUSEA
     Route: 054
     Dates: start: 20040823, end: 20110104
  10. DIPROLENE [Concomitant]
     Indication: DERMATITIS CONTACT
     Route: 061
     Dates: start: 20100526, end: 20110104
  11. TRINSICON [Concomitant]
     Indication: ROUTINE HEALTH MAINTENANCE
     Route: 048
     Dates: start: 20050620, end: 20110104
  12. LIBRIUM ^ICN^ [Concomitant]
     Indication: ANXIETY DISORDER
     Route: 048
     Dates: end: 20110104
  13. ZYRTEC [Concomitant]
     Indication: RHINITIS ALLERGIC
     Route: 048
     Dates: start: 20080401, end: 20110104
  14. CHLORDIAZEPOXIDE W/CLIDINIUM BROMIDE [Concomitant]
     Indication: GASTRIC ULCER
     Route: 048
     Dates: start: 20060322, end: 20110104
  15. PAXIL [Concomitant]
     Indication: DEPRESSION
     Route: 048
     Dates: start: 20100329, end: 20110104
  16. CYPROHEPTADINE HYDROCHLORIDE [Concomitant]
     Indication: DECREASED APPETITE
     Route: 048
     Dates: start: 20101116, end: 20110104
  17. HYDROXYZINE [Concomitant]
     Indication: DERMATITIS CONTACT
     Route: 048
     Dates: end: 20110104
  18. REMERON [Concomitant]
     Indication: DEPRESSION
     Route: 048
     Dates: start: 20100329, end: 20110104
  19. IMMUNE GLOBULIN NOS [Suspect]
     Indication: PRIMARY IMMUNODEFICIENCY SYNDROME
     Route: 058
     Dates: start: 20101227, end: 20101227
  20. RHUPH20 [Suspect]
     Indication: PRIMARY IMMUNODEFICIENCY SYNDROME
     Route: 058
     Dates: start: 20101227, end: 20101227
  21. ACEBUTOLOL [Concomitant]
     Indication: HYPERTENSION
     Route: 048
     Dates: start: 20000403, end: 20110104
  22. RHUPH20 [Suspect]
     Route: 058
     Dates: start: 20101227, end: 20101227
  23. MIDRIN [Concomitant]
     Indication: MIGRAINE
     Route: 048
     Dates: start: 20080414, end: 20110104
  24. SYNTHROID [Concomitant]
     Indication: HYPOTHYROIDISM
     Route: 048
     Dates: start: 20060501, end: 20110104
  25. ASMANEX TWISTHALER [Concomitant]
     Indication: ASTHMA
     Route: 055
     Dates: start: 20060713, end: 20110104
  26. VENTOLIN [Concomitant]
     Indication: ASTHMA
     Route: 055
     Dates: start: 20010814, end: 20110104
  27. CATAPRES /USA/ [Concomitant]
     Indication: ATTENTION DEFICIT/HYPERACTIVITY DISORDER
     Route: 023
     Dates: start: 20090403, end: 20101214
  28. OMEPRAZOLE [Concomitant]
     Indication: GASTROOESOPHAGEAL REFLUX DISEASE
     Route: 048
     Dates: start: 20090119, end: 20110104
  29. EPIPEN [Concomitant]
     Indication: PROPHYLAXIS
     Route: 030
     Dates: start: 20050103, end: 20110104
  30. XOPENEX [Concomitant]
     Indication: ASTHMA
     Route: 055
     Dates: start: 20050919, end: 20110104
  31. PROMETHAZINE HYDROCHLORIDE [Concomitant]
     Indication: NAUSEA
     Route: 048
     Dates: start: 20060802, end: 20110104
  32. ESTRADIOL [Concomitant]
     Indication: POSTMENOPAUSE
     Route: 023
     Dates: start: 20040823, end: 20110104
  33. CARAFATE [Concomitant]
     Indication: GASTRIC ULCER
     Route: 048
     Dates: start: 20100601, end: 20110104
  34. VITAMIN E [Concomitant]
     Indication: ROUTINE HEALTH MAINTENANCE
     Route: 048
     Dates: start: 20031029, end: 20110104
  35. BLACK COHOSH EXTRACT [Concomitant]
     Indication: MENOPAUSAL SYMPTOMS
     Route: 048
     Dates: start: 20020403, end: 20110104

REACTIONS (1)
  - TOXICITY TO VARIOUS AGENTS [None]
